FAERS Safety Report 8781319 (Version 5)
Quarter: 2013Q1

REPORT INFORMATION
  Report Type: Spontaneous
  Country: US (occurrence: US)
  Receive Date: 20120913
  Receipt Date: 20130315
  Transmission Date: 20140127
  Serious: Yes (Congenital Anomaly, Other)
  Sender: FDA-Public Use
  Company Number: US-PFIZER INC-2012225331

PATIENT
  Sex: Male

DRUGS (9)
  1. ZOLOFT [Suspect]
     Dosage: UNK
     Route: 064
     Dates: start: 200401
  2. PRENATAL VITAMINS [Concomitant]
     Dosage: UNK
     Route: 064
  3. MOTRIN [Concomitant]
     Dosage: UNK
     Route: 064
  4. CLEOCIN [Concomitant]
     Dosage: UNK
     Route: 064
  5. ZITHROMAX [Concomitant]
     Dosage: UNK
     Route: 064
  6. ACETAMINOPHEN [Concomitant]
     Dosage: UNK
     Route: 064
  7. LOW-OGESTREL [Concomitant]
     Dosage: UNK
     Route: 064
  8. DIFLUCAN [Concomitant]
     Dosage: UNK
     Route: 064
  9. FLEGYL [Concomitant]
     Dosage: UNK
     Route: 064

REACTIONS (5)
  - Maternal exposure timing unspecified [Unknown]
  - Exomphalos [Unknown]
  - Hydronephrosis [Recovered/Resolved]
  - Malformation venous [Recovered/Resolved]
  - Congenital cyst [Unknown]
